FAERS Safety Report 13133152 (Version 9)
Quarter: 2018Q3

REPORT INFORMATION
  Report Type: Report from Study
  Country: IE (occurrence: IE)
  Receive Date: 20170120
  Receipt Date: 20180822
  Transmission Date: 20181010
  Serious: Yes (Hospitalization, Other)
  Sender: FDA-Public Use
  Company Number: IE-TEVA-728405ACC

PATIENT
  Age: 14 Year
  Sex: Male

DRUGS (16)
  1. MELATONIN (G) [Concomitant]
     Route: 065
  2. QUETIAPINE. [Concomitant]
     Active Substance: QUETIAPINE
     Indication: PRODUCT USED FOR UNKNOWN INDICATION
     Route: 065
  3. TEVAQUEL [Suspect]
     Active Substance: QUETIAPINE
     Indication: PRODUCT USED FOR UNKNOWN INDICATION
     Dosage: 75 MILLIGRAM DAILY;
     Route: 065
     Dates: end: 201612
  4. RANITIDINE (GENERIC) [Concomitant]
     Indication: PRODUCT USED FOR UNKNOWN INDICATION
     Dosage: 10 ML DAILY; ONGOING
     Route: 065
  5. MELATONIN (G) [Concomitant]
     Indication: PRODUCT USED FOR UNKNOWN INDICATION
     Dosage: 2.5 MILLIGRAM DAILY; ONGOING
     Route: 065
  6. RISPERIDONE (GENERIC) [Concomitant]
     Dosage: .5 ML DAILY;
     Route: 065
     Dates: start: 201612
  7. MELATONIN (G) [Concomitant]
     Dosage: 3 MILLIGRAM DAILY;
     Route: 065
  8. RISPERIDONE (GENERIC) [Concomitant]
     Indication: PRODUCT USED FOR UNKNOWN INDICATION
     Dosage: 1 MILLIGRAM DAILY;
     Route: 065
     Dates: start: 201612
  9. KEMADRIN [Concomitant]
     Active Substance: PROCYCLIDINE HYDROCHLORIDE
     Indication: PRODUCT USED FOR UNKNOWN INDICATION
     Dosage: 5 MILLIGRAM DAILY;
     Route: 065
  10. ELAPRASE [Suspect]
     Active Substance: IDURSULFASE
     Indication: MUCOPOLYSACCHARIDOSIS II
     Dosage: 12 MG (ALTERNATING WITH 18 MG EVERY SECOND WEEK), 1X/WEEK
     Route: 041
     Dates: start: 20130717
  11. ZYPREXA [Concomitant]
     Active Substance: OLANZAPINE
     Dosage: 5 MILLIGRAM DAILY; 5 MG, 1X/DAY:QD (NIGHT)
     Route: 065
  12. ZYPREXA [Concomitant]
     Active Substance: OLANZAPINE
     Dosage: 3 MILLIGRAM DAILY;
     Route: 065
  13. RISPERIDONE (GENERIC) [Concomitant]
     Dosage: .5 ML DAILY;
     Route: 065
     Dates: start: 201612
  14. PHENERGAN 5.0 MG/5ML ORAL SOLUTION SYRUP [Concomitant]
     Indication: PRODUCT USED FOR UNKNOWN INDICATION
     Route: 065
  15. ELAPRASE [Suspect]
     Active Substance: IDURSULFASE
     Route: 041
  16. ZYPREXA [Concomitant]
     Active Substance: OLANZAPINE
     Indication: PRODUCT USED FOR UNKNOWN INDICATION
     Dosage: 2.5 MILLIGRAM DAILY;
     Route: 065

REACTIONS (19)
  - Dystonia [Recovering/Resolving]
  - Abdominal distension [Not Recovered/Not Resolved]
  - Pain [Recovering/Resolving]
  - Muscle twitching [Unknown]
  - Throat irritation [Not Recovered/Not Resolved]
  - Dysphagia [Not Recovered/Not Resolved]
  - Eructation [Not Recovered/Not Resolved]
  - Body temperature abnormal [Not Recovered/Not Resolved]
  - Insomnia [Not Recovered/Not Resolved]
  - Emotional distress [Unknown]
  - Weight decreased [Unknown]
  - Condition aggravated [Not Recovered/Not Resolved]
  - Bruxism [Unknown]
  - Diarrhoea [Not Recovered/Not Resolved]
  - Aggression [Not Recovered/Not Resolved]
  - Hypophagia [Unknown]
  - Agitation [Recovering/Resolving]
  - Restlessness [Not Recovered/Not Resolved]
  - Repetitive speech [Unknown]

NARRATIVE: CASE EVENT DATE: 201610
